FAERS Safety Report 20363445 (Version 1)
Quarter: 2022Q1

REPORT INFORMATION
  Report Type: Spontaneous
  Country: US (occurrence: None)
  Receive Date: 20220121
  Receipt Date: 20220121
  Transmission Date: 20220423
  Serious: No
  Sender: FDA-Public Use
  Company Number: None

PATIENT
  Age: 37 Year
  Sex: Female

DRUGS (1)
  1. STELARA [Suspect]
     Active Substance: USTEKINUMAB
     Dosage: FREQUENCY : ONCE;?
     Route: 011
     Dates: start: 20211216

REACTIONS (2)
  - Colitis ulcerative [None]
  - Infusion related reaction [None]

NARRATIVE: CASE EVENT DATE: 20211227
